FAERS Safety Report 4316469-7 (Version None)
Quarter: 2004Q1

REPORT INFORMATION
  Report Type: 
  Country: None (occurrence: None)
  Receive Date: 20040311
  Receipt Date: 20040304
  Transmission Date: 20041129
  Serious: Yes (Life-Threatening)
  Sender: FDA-Public Use
  Company Number: 2004201958GB

PATIENT
  Age: 62 Year
  Sex: Male
  Weight: 90 kg

DRUGS (12)
  1. LINEZOLID (LINEZOLID) SOLUTION, STERILE [Suspect]
     Indication: PNEUMONIA
     Dosage: 600 MG BID IV
     Route: 042
     Dates: start: 20040112, end: 20040127
  2. TAZOCINA (TAZOBACTAM SODIUM) [Suspect]
     Indication: PNEUMONIA
     Dosage: 4.5 G TID IV
     Route: 042
     Dates: start: 20040120, end: 20040129
  3. CLONIDINE [Concomitant]
  4. VANCOMYCIN HYDROCHLORIDE [Concomitant]
  5. OMEPRAZOLE [Concomitant]
  6. FRUSEMIDE [Concomitant]
  7. NORADRENALINE [Concomitant]
  8. ERYTHROMYCIN [Concomitant]
  9. ACETAMINOPHEN [Concomitant]
  10. ASPIRIN [Concomitant]
  11. SENNA [Concomitant]
  12. HL [Concomitant]

REACTIONS (2)
  - EOSINOPHILIA [None]
  - RASH [None]
